FAERS Safety Report 10703444 (Version 2)
Quarter: 2015Q1

REPORT INFORMATION
  Report Type: Spontaneous
  Country: JP (occurrence: JP)
  Receive Date: 20150112
  Receipt Date: 20150205
  Transmission Date: 20150721
  Serious: Yes (Death, Other)
  Sender: FDA-Public Use
  Company Number: JP-ROCHE-1519337

PATIENT
  Age: 67 Year
  Sex: Female

DRUGS (3)
  1. CARBOPLATIN. [Concomitant]
     Active Substance: CARBOPLATIN
     Indication: OVARIAN CANCER RECURRENT
     Dosage: DOSAGE IS UNCERTAIN.
     Route: 041
     Dates: start: 20141107, end: 20141219
  2. AVASTIN [Suspect]
     Active Substance: BEVACIZUMAB
     Indication: OVARIAN CANCER RECURRENT
     Dosage: DATE OF MOST RECENT DOSE PRIOR TO THE EVENT : 19/DEC/2014
     Route: 041
     Dates: start: 20141107
  3. PACLITAXEL. [Concomitant]
     Active Substance: PACLITAXEL
     Indication: OVARIAN CANCER RECURRENT
     Dosage: DOSAGE IS UNCERTAIN.
     Route: 041
     Dates: start: 20141107, end: 20141219

REACTIONS (11)
  - Hepatic steatosis [Unknown]
  - Sepsis [Fatal]
  - Disseminated intravascular coagulation [Fatal]
  - Hydronephrosis [Unknown]
  - Thrombosis [Unknown]
  - Gallbladder enlargement [Unknown]
  - Bone marrow failure [Unknown]
  - Enterocolitis [Unknown]
  - Gastrointestinal perforation [Unknown]
  - Septic shock [Fatal]
  - Atrial fibrillation [Unknown]

NARRATIVE: CASE EVENT DATE: 201412
